FAERS Safety Report 4346565-X (Version None)
Quarter: 2004Q2

REPORT INFORMATION
  Report Type: 
  Country: None (occurrence: None)
  Receive Date: 20040426
  Receipt Date: 20040210
  Transmission Date: 20050107
  Serious: Yes (Disabling)
  Sender: FDA-Public Use
  Company Number: US-BRISTOL-MYERS SQUIBB COMPANY-12502795

PATIENT
  Sex: Female

DRUGS (3)
  1. TAXOL [Suspect]
     Indication: BREAST CANCER
     Route: 042
  2. CARBOPLATIN [Suspect]
     Indication: BREAST CANCER
  3. HERCEPTIN [Suspect]
     Indication: BREAST CANCER

REACTIONS (1)
  - PERIPHERAL MOTOR NEUROPATHY [None]
